FAERS Safety Report 14657393 (Version 1)
Quarter: 2018Q1

REPORT INFORMATION
  Report Type: Spontaneous
  Country: GB (occurrence: GB)
  Receive Date: 20180320
  Receipt Date: 20180320
  Transmission Date: 20180509
  Serious: Yes (Life-Threatening, Hospitalization, Disabling)
  Sender: FDA-Public Use
  Company Number: GB-ROCHE-2088983

PATIENT
  Age: 68 Year
  Sex: Female
  Weight: 69.85 kg

DRUGS (5)
  1. DALTEPARIN [Suspect]
     Active Substance: DALTEPARIN
     Indication: PULMONARY EMBOLISM
     Route: 065
     Dates: start: 20171026, end: 20171029
  2. TRASTUZUMAB. [Suspect]
     Active Substance: TRASTUZUMAB
     Indication: PALLIATIVE CARE
     Route: 065
     Dates: start: 20171020, end: 20171024
  3. OMEPRAZOLE. [Concomitant]
     Active Substance: OMEPRAZOLE
     Route: 065
  4. DEXAMETHASONE. [Concomitant]
     Active Substance: DEXAMETHASONE
     Route: 065
  5. LEVETIRACETAM. [Concomitant]
     Active Substance: LEVETIRACETAM
     Route: 065

REACTIONS (2)
  - Cerebral haemorrhage [Not Recovered/Not Resolved]
  - Consciousness fluctuating [Unknown]

NARRATIVE: CASE EVENT DATE: 20171026
